FAERS Safety Report 21272404 (Version 1)
Quarter: 2022Q3

REPORT INFORMATION
  Report Type: Spontaneous
  Country: US (occurrence: US)
  Receive Date: 20220830
  Receipt Date: 20220830
  Transmission Date: 20221026
  Serious: No
  Sender: FDA-Public Use
  Company Number: US-ABBVIE-22K-163-4257427-00

PATIENT

DRUGS (2)
  1. MAVYRET [Suspect]
     Active Substance: GLECAPREVIR\PIBRENTASVIR
     Indication: Hepatitis
     Route: 048
  2. FERRITIN [Concomitant]
     Active Substance: FERRITIN
     Indication: Product used for unknown indication

REACTIONS (1)
  - Haemochromatosis [Unknown]
